FAERS Safety Report 11380656 (Version 1)
Quarter: 2015Q3

REPORT INFORMATION
  Report Type: Spontaneous
  Country: US (occurrence: US)
  Receive Date: 20150814
  Receipt Date: 20150814
  Transmission Date: 20151125
  Serious: No
  Sender: FDA-Public Use
  Company Number: US-JNJFOC-20150115924

PATIENT
  Age: 59 Year
  Sex: Female

DRUGS (2)
  1. IMODIUM MULTI-SYMPTOM RELIEF [Suspect]
     Active Substance: DIMETHICONE\LOPERAMIDE HYDROCHLORIDE
     Route: 048
  2. IMODIUM MULTI-SYMPTOM RELIEF [Suspect]
     Active Substance: DIMETHICONE\LOPERAMIDE HYDROCHLORIDE
     Indication: DIARRHOEA
     Dosage: TOTAL OF 5 CAPLETS IN 24 HOURS
     Route: 048

REACTIONS (5)
  - Product size issue [Unknown]
  - Overdose [Unknown]
  - Drug ineffective [Unknown]
  - Product coating issue [Unknown]
  - Dysphagia [Recovering/Resolving]
